FAERS Safety Report 20074856 (Version 1)
Quarter: 2021Q4

REPORT INFORMATION
  Report Type: Spontaneous
  Country: US (occurrence: US)
  Receive Date: 20211116
  Receipt Date: 20211116
  Transmission Date: 20220303
  Serious: No
  Sender: FDA-Public Use
  Company Number: US-SA-SAC20211110000727

PATIENT
  Sex: Female

DRUGS (19)
  1. AUBAGIO [Suspect]
     Active Substance: TERIFLUNOMIDE
     Indication: Multiple sclerosis
     Dosage: 14MG,QD
     Route: 048
  2. ACETAMINOPHEN [Concomitant]
     Active Substance: ACETAMINOPHEN
  3. DEXAMETHASONE [Concomitant]
     Active Substance: DEXAMETHASONE
  4. DIPHENHYDRAMINE [Concomitant]
     Active Substance: DIPHENHYDRAMINE
  5. HEPARIN [Concomitant]
     Active Substance: HEPARIN SODIUM
  6. ONDANSETRON [Concomitant]
     Active Substance: ONDANSETRON
  7. EPINEPHRINE [Concomitant]
     Active Substance: EPINEPHRINE
  8. GAMUNEX [Concomitant]
     Active Substance: HUMAN IMMUNOGLOBULIN G
  9. LYRICA [Concomitant]
     Active Substance: PREGABALIN
  10. RAMELTEON [Concomitant]
     Active Substance: RAMELTEON
  11. OMEPRAZOLE [Concomitant]
     Active Substance: OMEPRAZOLE
     Dosage: 40 MG
  12. MEMANTINE HYDROCHLORIDE [Concomitant]
     Active Substance: MEMANTINE HYDROCHLORIDE
     Dosage: 10MG
  13. ATENOLOL [Concomitant]
     Active Substance: ATENOLOL
  14. MELOXICAM [Concomitant]
     Active Substance: MELOXICAM
  15. HYDROMORPHONE HYDROCHLORIDE [Concomitant]
     Active Substance: HYDROMORPHONE HYDROCHLORIDE
     Dosage: 4MG
  16. OXCARBAZEPINE [Concomitant]
     Active Substance: OXCARBAZEPINE
  17. DICYCLOMINE HYDROCHLORIDE [Concomitant]
     Active Substance: DICYCLOMINE HYDROCHLORIDE
     Dosage: 20MG
  18. VITAMIN D3 [Concomitant]
     Active Substance: CHOLECALCIFEROL
     Dosage: 20MG
  19. CYCLOBENZAPRINE [Concomitant]
     Active Substance: CYCLOBENZAPRINE
     Dosage: 10MG

REACTIONS (1)
  - Rash [Unknown]
